FAERS Safety Report 24373447 (Version 1)
Quarter: 2024Q3

REPORT INFORMATION
  Report Type: Spontaneous
  Country: US (occurrence: US)
  Receive Date: 20240927
  Receipt Date: 20240927
  Transmission Date: 20241016
  Serious: No
  Sender: VIVUS
  Company Number: US-VIVUS LLC-2023V1000729

PATIENT
  Age: 66 Year
  Sex: Female
  Weight: 76.272 kg

DRUGS (2)
  1. QSYMIA [Suspect]
     Active Substance: PHENTERMINE HYDROCHLORIDE\TOPIRAMATE
     Indication: Weight decreased
     Route: 048
  2. QSYMIA [Suspect]
     Active Substance: PHENTERMINE HYDROCHLORIDE\TOPIRAMATE
     Indication: Weight decreased
     Route: 048
     Dates: start: 20230621

REACTIONS (5)
  - Dry mouth [Unknown]
  - Dizziness [Unknown]
  - Disturbance in attention [Unknown]
  - Speech disorder [Unknown]
  - Memory impairment [Unknown]
